FAERS Safety Report 25852081 (Version 1)
Quarter: 2025Q3

REPORT INFORMATION
  Report Type: Spontaneous
  Country: EU (occurrence: EU)
  Receive Date: 20250926
  Receipt Date: 20250926
  Transmission Date: 20251020
  Serious: Yes (Other)
  Sender: MERCK SHARP & DOHME LLC
  Company Number: None

PATIENT
  Sex: Male

DRUGS (13)
  1. VARIVAX [Suspect]
     Active Substance: VARICELLA-ZOSTER VIRUS STRAIN OKA/MERCK LIVE ANTIGEN
     Indication: Immunisation
     Route: 058
     Dates: start: 20241120, end: 20241120
  2. VARIVAX [Suspect]
     Active Substance: VARICELLA-ZOSTER VIRUS STRAIN OKA/MERCK LIVE ANTIGEN
  3. M-M-RVAXPRO [Suspect]
     Active Substance: MEASLES VIRUS STRAIN ENDERS^ ATTENUATED EDMONSTON LIVE ANTIGEN\MUMPS VIRUS STRAIN B LEVEL JERYL LYNN
     Indication: Immunisation
     Route: 058
     Dates: start: 20241120, end: 20241120
  4. PENTAXIM [Suspect]
     Active Substance: DIPHTHERIA AND TETANUS TOXOIDS AND ACELLULAR PERTUSSIS ADSORBED, INACTIVATED POLIOVIRUS AND HAEMOPHI
     Indication: Immunisation
     Route: 065
     Dates: start: 20231129, end: 20231129
  5. PREVENAR [Suspect]
     Active Substance: PNEUMOCOCCAL 7-VALENT CONJUGATE VACCINE (DIPHTHERIA CRM197 PROTEIN)
     Indication: Immunisation
     Route: 065
     Dates: start: 20230913, end: 20230913
  6. PREVENAR [Suspect]
     Active Substance: PNEUMOCOCCAL 7-VALENT CONJUGATE VACCINE (DIPHTHERIA CRM197 PROTEIN)
     Indication: Immunisation
     Route: 065
     Dates: start: 20231129, end: 20231129
  7. NEISVAC-C [Suspect]
     Active Substance: MENINGOCOCCAL POLYSACCHARIDE VACCINE C
     Indication: Immunisation
     Route: 065
     Dates: start: 20240117, end: 20240117
  8. BCG VACCINE [Suspect]
     Active Substance: BCG VACCINE
     Indication: Immunisation
     Route: 065
     Dates: start: 20230714, end: 20230714
  9. PENTAXIM [Suspect]
     Active Substance: DIPHTHERIA AND TETANUS TOXOIDS AND ACELLULAR PERTUSSIS ADSORBED, INACTIVATED POLIOVIRUS AND HAEMOPHI
     Indication: Immunisation
     Route: 065
     Dates: start: 20230913, end: 20230913
  10. NEISVAC-C [Suspect]
     Active Substance: MENINGOCOCCAL POLYSACCHARIDE VACCINE C
     Indication: Immunisation
     Route: 030
     Dates: start: 20240925, end: 20240925
  11. NEISVAC-C [Suspect]
     Active Substance: MENINGOCOCCAL POLYSACCHARIDE VACCINE C
     Indication: Immunisation
     Route: 065
     Dates: start: 20231018, end: 20231018
  12. PENTAXIM [Suspect]
     Active Substance: DIPHTHERIA AND TETANUS TOXOIDS AND ACELLULAR PERTUSSIS ADSORBED, INACTIVATED POLIOVIRUS AND HAEMOPHI
     Indication: Immunisation
     Route: 065
     Dates: start: 20231018, end: 20231018
  13. STERILE DILUENT (WATER) [Suspect]
     Active Substance: WATER
     Route: 058
     Dates: start: 20241120, end: 20241120

REACTIONS (15)
  - Dyspnoea [Not Recovered/Not Resolved]
  - Irritability [Not Recovered/Not Resolved]
  - Nasal discharge discolouration [Not Recovered/Not Resolved]
  - Infection [Not Recovered/Not Resolved]
  - Nasopharyngitis [Not Recovered/Not Resolved]
  - Pyrexia [Not Recovered/Not Resolved]
  - Penile erosion [Not Recovered/Not Resolved]
  - Conjunctivitis [Not Recovered/Not Resolved]
  - Dry skin [Not Recovered/Not Resolved]
  - Gastrointestinal viral infection [Not Recovered/Not Resolved]
  - Pyrexia [Recovered/Resolved]
  - Rash [Not Recovered/Not Resolved]
  - Productive cough [Not Recovered/Not Resolved]
  - Rhinitis [Not Recovered/Not Resolved]
  - Viral infection [Not Recovered/Not Resolved]

NARRATIVE: CASE EVENT DATE: 20230911
